FAERS Safety Report 6672036-1 (Version None)
Quarter: 2010Q2

REPORT INFORMATION
  Report Type: 
  Country: None (occurrence: None)
  Receive Date: 20100406
  Receipt Date: 20100323
  Transmission Date: 20101027
  Serious: Yes (Hospitalization)
  Sender: FDA-Public Use
  Company Number: B0643823A

PATIENT
  Age: 67 Year
  Sex: Female

DRUGS (2)
  1. ONDANSETRON HYDROCHLORIDE [Suspect]
     Indication: NAUSEA
     Dosage: 4MG, TWICE PER DAY;
  2. FLUOXETINE [Suspect]
     Indication: DEPRESSION
     Dosage: 60 MG,

REACTIONS (12)
  - ACUTE MYOCARDIAL INFARCTION [None]
  - BRAIN NATRIURETIC PEPTIDE INCREASED [None]
  - CRYING [None]
  - ELECTROCARDIOGRAM T WAVE INVERSION [None]
  - EMOTIONAL DISTRESS [None]
  - GASTROINTESTINAL STOMA COMPLICATION [None]
  - HYPOMAGNESAEMIA [None]
  - ILEOSTOMY [None]
  - LONG QT SYNDROME [None]
  - STRESS CARDIOMYOPATHY [None]
  - SYNCOPE [None]
  - TORSADE DE POINTES [None]
